FAERS Safety Report 13472791 (Version 1)
Quarter: 2017Q2

REPORT INFORMATION
  Report Type: Spontaneous
  Country: US (occurrence: US)
  Receive Date: 20170424
  Receipt Date: 20170424
  Transmission Date: 20170830
  Serious: No
  Sender: FDA-Public Use
  Company Number: US-MISSION PHARMACAL COMPANY-1065766

PATIENT
  Age: 53 Year
  Sex: Male

DRUGS (1)
  1. THIOLA [Suspect]
     Active Substance: TIOPRONIN
     Indication: CALCULUS URINARY
     Route: 065
     Dates: start: 20151031

REACTIONS (4)
  - Liver function test increased [None]
  - Abdominal pain [Unknown]
  - Drug ineffective [Unknown]
  - Vomiting [Unknown]
